FAERS Safety Report 20897302 (Version 1)
Quarter: 2022Q2

REPORT INFORMATION
  Report Type: Spontaneous
  Country: FR (occurrence: FR)
  Receive Date: 20220531
  Receipt Date: 20220531
  Transmission Date: 20220721
  Serious: Yes (Hospitalization)
  Sender: FDA-Public Use
  Company Number: FR-PFIZER INC-202200746242

PATIENT
  Age: 58 Year
  Sex: Female

DRUGS (2)
  1. LYRICA [Suspect]
     Active Substance: PREGABALIN
     Dosage: 300 MG, 1X/DAY
  2. TRAMADOL [Concomitant]
     Active Substance: TRAMADOL

REACTIONS (4)
  - Dehydration [Recovering/Resolving]
  - Somnolence [Recovering/Resolving]
  - Product dispensing error [Unknown]
  - Incorrect dose administered [Unknown]
